FAERS Safety Report 8945405 (Version 1)
Quarter: 2012Q4

REPORT INFORMATION
  Report Type: 
  Country: GB (occurrence: GB)
  Receive Date: 20121205
  Receipt Date: 20121205
  Transmission Date: 20130627
  Serious: Yes (Disabling)
  Sender: FDA-Public Use
  Company Number: GB-009507513-1212GBR000582

PATIENT
  Age: 87 Year
  Sex: Female

DRUGS (6)
  1. ALENDRONATE SODIUM [Suspect]
     Indication: OSTEOPOROSIS
     Dosage: 70 mg, qw
     Route: 048
     Dates: start: 2004, end: 2012
  2. AMLODIPINE [Concomitant]
     Dosage: 5 mg, UNK
     Route: 048
  3. ATORVASTATIN [Concomitant]
     Dosage: 10 mg, qd
  4. DOXAZOSIN MESYLATE [Concomitant]
     Dosage: 5 mg, UNK
  5. OMEPRAZOLE [Concomitant]
     Dosage: 40 mg, qd
  6. ACETAMINOPHEN [Concomitant]
     Dosage: 1 g, qid

REACTIONS (1)
  - Stress fracture [Recovering/Resolving]
